FAERS Safety Report 6439069-1 (Version None)
Quarter: 2009Q4

REPORT INFORMATION
  Report Type: 
  Country: None (occurrence: None)
  Receive Date: 20091111
  Receipt Date: 20091111
  Transmission Date: 20100525
  Serious: Yes (Life-Threatening, Other)
  Sender: FDA-Public Use
  Company Number: None

PATIENT
  Age: 42 Year
  Sex: Female
  Weight: 68.0396 kg

DRUGS (1)
  1. NUCYNTA [Suspect]
     Indication: PAIN
     Dates: start: 20090815, end: 20091011

REACTIONS (13)
  - AGITATION [None]
  - CONFUSIONAL STATE [None]
  - CONTUSION [None]
  - DEPRESSION [None]
  - DIZZINESS [None]
  - DRUG INTERACTION [None]
  - HALLUCINATION [None]
  - MOOD ALTERED [None]
  - MOVEMENT DISORDER [None]
  - MUSCLE TWITCHING [None]
  - NAUSEA [None]
  - ROAD TRAFFIC ACCIDENT [None]
  - STERNAL FRACTURE [None]
